FAERS Safety Report 7299313-8 (Version None)
Quarter: 2011Q1

REPORT INFORMATION
  Report Type: 
  Country: None (occurrence: None)
  Receive Date: 20110217
  Receipt Date: 20110214
  Transmission Date: 20110831
  Serious: Yes (Hospitalization)
  Sender: FDA-Public Use
  Company Number: A0687271A

PATIENT
  Sex: Male

DRUGS (5)
  1. PAXIL [Suspect]
     Indication: PRODUCT USED FOR UNKNOWN INDICATION
     Dosage: 10MG PER DAY
     Route: 064
     Dates: start: 19990801, end: 20010101
  2. FOLIC ACID [Concomitant]
     Route: 064
  3. FLINTSTONES MULTI VITAMIN [Concomitant]
     Route: 064
  4. PAXIL CR [Suspect]
     Indication: PRODUCT USED FOR UNKNOWN INDICATION
     Route: 064
  5. STADOL [Concomitant]
     Indication: MIGRAINE
     Route: 064
     Dates: start: 20000101

REACTIONS (5)
  - PERSISTENT FOETAL CIRCULATION [None]
  - LUNG DISORDER [None]
  - RESPIRATORY DISORDER [None]
  - HEART RATE IRREGULAR [None]
  - DRUG EXPOSURE DURING PREGNANCY [None]
